FAERS Safety Report 11697435 (Version 2)
Quarter: 2015Q4

REPORT INFORMATION
  Report Type: Spontaneous
  Country: CN (occurrence: CN)
  Receive Date: 20151104
  Receipt Date: 20151117
  Transmission Date: 20160304
  Serious: Yes (Other)
  Sender: FDA-Public Use
  Company Number: CN-IMPAX LABORATORIES, INC-2015-IPXL-01091

PATIENT
  Sex: Female

DRUGS (1)
  1. ALBENZA [Suspect]
     Active Substance: ALBENDAZOLE
     Indication: HELMINTHIC INFECTION
     Dosage: 2 TABLETS, QD
     Route: 048

REACTIONS (3)
  - Complication of pregnancy [Recovered/Resolved]
  - Exposure during pregnancy [Unknown]
  - Incorrect drug administration duration [Unknown]
